FAERS Safety Report 7650006-4 (Version None)
Quarter: 2011Q3

REPORT INFORMATION
  Report Type: 
  Country: None (occurrence: None)
  Receive Date: 20110727
  Receipt Date: 20110715
  Transmission Date: 20111222
  Serious: Yes (Other)
  Sender: FDA-Public Use
  Company Number: ACO_25859_2011

PATIENT
  Age: 59 Year
  Sex: Female

DRUGS (12)
  1. AMPYRA [Suspect]
     Indication: GAIT DISTURBANCE
     Dosage: 10 MG, BID,ORAL
     Route: 048
     Dates: start: 20110516, end: 20110603
  2. NAMENDA [Concomitant]
  3. CRESTOR [Concomitant]
  4. CARVEDILOL [Concomitant]
  5. CLONAZEPAM [Concomitant]
  6. CYMBALTA [Concomitant]
  7. IBUPROEFN (IBUPROFEN) [Concomitant]
  8. AVONEX [Concomitant]
  9. LAMOTRIGINE [Concomitant]
  10. OMEPRAZOLE [Concomitant]
  11. LOSARTAN POTASSIUM [Concomitant]
  12. METFORIN HCL (METFORMIN HYDROCHLORIDE) [Concomitant]

REACTIONS (5)
  - VOMITING [None]
  - NAUSEA [None]
  - DIZZINESS [None]
  - CONVULSION [None]
  - HYPERHIDROSIS [None]
